FAERS Safety Report 5663694-9 (Version None)
Quarter: 2008Q1

REPORT INFORMATION
  Report Type: 
  Country: None (occurrence: None)
  Receive Date: 20080310
  Receipt Date: 20080228
  Transmission Date: 20080703
  Serious: Yes (Hospitalization)
  Sender: FDA-Public Use
  Company Number: 056-C5013-07080162

PATIENT
  Age: 79 Year
  Sex: Female
  Weight: 66 kg

DRUGS (11)
  1. CC-5013 (LENALIDOMIDE) (CAPSULES) [Suspect]
     Indication: 5Q-SYNDROME
     Dosage: 5 MG, DAILY, ORAL
     Route: 048
     Dates: start: 20070622, end: 20070707
  2. LANSOPRAZOLE [Concomitant]
  3. ZOLPIDEM [Concomitant]
  4. FUROSEMIDE [Concomitant]
  5. ACETAMINOPHEN [Concomitant]
  6. ELUDRIL (ELUDRIL) [Concomitant]
  7. CANDESARTAN CILEXETIL [Concomitant]
  8. TRIMETAZIDINE (TRIMETAZIDINE) [Concomitant]
  9. LEVOTHYROXINE SODIQUE (LEVOTHYROXINE SODIUM) [Concomitant]
  10. NEBIVOLOL HCL [Concomitant]
  11. ALLOPURINOL [Concomitant]

REACTIONS (6)
  - BLOOD UREA INCREASED [None]
  - GASTRIC POLYPS [None]
  - HAEMOGLOBIN ABNORMAL [None]
  - HIATUS HERNIA [None]
  - LUNG DISORDER [None]
  - OESOPHAGITIS [None]
